FAERS Safety Report 17816946 (Version 1)
Quarter: 2020Q2

REPORT INFORMATION
  Report Type: Spontaneous
  Country: US (occurrence: US)
  Receive Date: 20200522
  Receipt Date: 20200522
  Transmission Date: 20200714
  Serious: Yes (Other)
  Sender: FDA-Public Use
  Company Number: None

PATIENT
  Age: 83 Year
  Sex: Female
  Weight: 41.4 kg

DRUGS (12)
  1. AMLODIPINE [Concomitant]
     Active Substance: AMLODIPINE BESYLATE
  2. MEDROL DOSE PACK [Concomitant]
     Active Substance: METHYLPREDNISOLONE
  3. FLONASE [Concomitant]
     Active Substance: FLUTICASONE PROPIONATE
  4. COLACE [Concomitant]
     Active Substance: DOCUSATE SODIUM
  5. IBRANCE [Suspect]
     Active Substance: PALBOCICLIB
     Indication: BREAST CANCER FEMALE
     Dosage: ?          OTHER FREQUENCY:EVERY OTHER DAY;?
     Route: 048
     Dates: start: 20190717
  6. MUCINEX D [Concomitant]
     Active Substance: GUAIFENESIN\PSEUDOEPHEDRINE HYDROCHLORIDE
  7. DULERA [Concomitant]
     Active Substance: FORMOTEROL FUMARATE DIHYDRATE\MOMETASONE FUROATE
  8. MIRALAX [Concomitant]
     Active Substance: POLYETHYLENE GLYCOL 3350
  9. VENTOLIN HFA [Concomitant]
     Active Substance: ALBUTEROL SULFATE
  10. FEMARA [Concomitant]
     Active Substance: LETROZOLE
  11. ALBUTEROL. [Concomitant]
     Active Substance: ALBUTEROL
  12. ATIVAN [Concomitant]
     Active Substance: LORAZEPAM

REACTIONS (1)
  - Constipation [None]

NARRATIVE: CASE EVENT DATE: 20200522
